FAERS Safety Report 8389697-1 (Version None)
Quarter: 2012Q2

REPORT INFORMATION
  Report Type: 
  Country: None (occurrence: None)
  Receive Date: 20120529
  Receipt Date: 20120519
  Transmission Date: 20120825
  Serious: Yes (Hospitalization, Other)
  Sender: FDA-Public Use
  Company Number: ES-PAR PHARMACEUTICAL, INC-2012SCPR004391

PATIENT

DRUGS (1)
  1. IBUPROFEN [Suspect]
     Indication: SCIATICA
     Dosage: 600 MG, UNKNOWN
     Route: 065

REACTIONS (3)
  - HYPOTENSION [None]
  - DUODENITIS [None]
  - MESENTERIC PANNICULITIS [None]
